FAERS Safety Report 8147509-5 (Version None)
Quarter: 2012Q1

REPORT INFORMATION
  Report Type: 
  Country: None (occurrence: None)
  Receive Date: 20120218
  Receipt Date: 20110222
  Transmission Date: 20120608
  Serious: No
  Sender: FDA-Public Use
  Company Number: US-ALLERGAN-1102509US

PATIENT
  Age: 39 Year
  Sex: Male

DRUGS (1)
  1. BOTULINUM TOXIN TYPE A [Suspect]
     Indication: MIGRAINE
     Dosage: UNK
     Route: 030
     Dates: start: 20110218, end: 20110218

REACTIONS (6)
  - VISION BLURRED [None]
  - SWELLING FACE [None]
  - NECK PAIN [None]
  - NAUSEA [None]
  - DIZZINESS [None]
  - INFLUENZA [None]
